FAERS Safety Report 18144580 (Version 1)
Quarter: 2020Q3

REPORT INFORMATION
  Report Type: Report from Study
  Country: PA (occurrence: PA)
  Receive Date: 20200813
  Receipt Date: 20200813
  Transmission Date: 20201103
  Serious: Yes (Other)
  Sender: FDA-Public Use
  Company Number: NVSC2020PA223491

PATIENT
  Age: 71 Year
  Sex: Male

DRUGS (1)
  1. VYMADA [Suspect]
     Active Substance: SACUBITRIL\VALSARTAN
     Indication: CARDIAC FAILURE
     Dosage: 0.5 DF, BID ((DAILY DOSE WAS HALF TABLET TWICE DAILY)
     Route: 065

REACTIONS (5)
  - Fatigue [Unknown]
  - Wrong technique in product usage process [Unknown]
  - Cardiac failure [Unknown]
  - Infarction [Unknown]
  - Arrhythmia [Unknown]
